FAERS Safety Report 16474418 (Version 1)
Quarter: 2019Q3

REPORT INFORMATION
  Report Type: Spontaneous
  Country: US (occurrence: US)
  Receive Date: 20190624
  Receipt Date: 20190624
  Transmission Date: 20191004
  Serious: Yes (Hospitalization)
  Sender: FDA-Public Use
  Company Number: None

PATIENT
  Age: 28 Year
  Sex: Female

DRUGS (10)
  1. PANTOPRAZOLE [Concomitant]
     Active Substance: PANTOPRAZOLE
  2. MONTEKAST [Concomitant]
     Active Substance: MONTELUKAST SODIUM
  3. LO LOESTRIN FE [Concomitant]
     Active Substance: ETHINYL ESTRADIOL\NORETHINDRONE ACETATE
  4. AZATHIOPRINE. [Concomitant]
     Active Substance: AZATHIOPRINE
  5. ALLOPURINOL. [Concomitant]
     Active Substance: ALLOPURINOL
  6. UCERIS [Concomitant]
     Active Substance: BUDESONIDE
  7. CIMZIA [Suspect]
     Active Substance: CERTOLIZUMAB PEGOL
     Indication: CROHN^S DISEASE
     Dosage: ?          OTHER FREQUENCY:EVERY 2 WEEKS;?
     Route: 058
     Dates: start: 20181106
  8. GABAPENTIN. [Concomitant]
     Active Substance: GABAPENTIN
  9. BUDESONIDE. [Concomitant]
     Active Substance: BUDESONIDE
  10. CELECOXIB. [Concomitant]
     Active Substance: CELECOXIB

REACTIONS (1)
  - Surgery [None]

NARRATIVE: CASE EVENT DATE: 20190601
